FAERS Safety Report 17629767 (Version 3)
Quarter: 2020Q2

REPORT INFORMATION
  Report Type: Spontaneous
  Country: BG (occurrence: BG)
  Receive Date: 20200406
  Receipt Date: 20200512
  Transmission Date: 20200713
  Serious: Yes (Death, Life-Threatening, Hospitalization, Other)
  Sender: FDA-Public Use
  Company Number: BG-ACCORD-178033

PATIENT
  Age: 49 Year
  Sex: Female

DRUGS (7)
  1. ETOPOSIDE. [Suspect]
     Active Substance: ETOPOSIDE
     Indication: HODGKIN^S DISEASE
     Dosage: IN CYCLES OF 21 DAYS WITH NO DRUGS GIVEN ON DAYS 15-21
  2. DOXORUBICIN [Suspect]
     Active Substance: DOXORUBICIN
     Indication: HODGKIN^S DISEASE
     Dosage: IN CYCLES OF 21 DAYS WITH NO DRUGS GIVEN ON DAYS 15-21
  3. PROCARBAZINE [Suspect]
     Active Substance: PROCARBAZINE
     Indication: HODGKIN^S DISEASE
     Dosage: IN CYCLES OF 21 DAYS WITH NO DRUGS GIVEN ON DAYS 15-21
  4. PREDNISOLONE. [Suspect]
     Active Substance: PREDNISOLONE
     Indication: HODGKIN^S DISEASE
     Dosage: IN CYCLES OF 21 DAYS WITH NO DRUGS GIVEN ON DAYS 15-21
  5. BLEOMYCIN [Suspect]
     Active Substance: BLEOMYCIN SULFATE
     Indication: HODGKIN^S DISEASE
     Dosage: IN CYCLES OF 21 DAYS WITH NO DRUGS GIVEN ON DAYS 15-21
  6. CYCLOPHOSPHAMIDE/CYCLOPHOSPHAMIDE MONOHYDRATE [Suspect]
     Active Substance: CYCLOPHOSPHAMIDE
     Indication: HODGKIN^S DISEASE
     Dosage: IN CYCLES OF 21 DAYS WITH NO DRUGS GIVEN ON DAYS 15-21
  7. ONCOVIN [Suspect]
     Active Substance: VINCRISTINE SULFATE
     Indication: HODGKIN^S DISEASE
     Dosage: IN CYCLES OF 21 DAYS WITH NO DRUGS GIVEN ON DAYS 15-21

REACTIONS (8)
  - Coma [Not Recovered/Not Resolved]
  - Bone marrow failure [Fatal]
  - Meningoencephalitis bacterial [Fatal]
  - Acute respiratory failure [Fatal]
  - Febrile neutropenia [Fatal]
  - Listeria sepsis [Fatal]
  - Circulatory collapse [Fatal]
  - Influenza [Fatal]
